FAERS Safety Report 5083031-0 (Version None)
Quarter: 2006Q3

REPORT INFORMATION
  Report Type: 
  Country: None (occurrence: None)
  Receive Date: 20060814
  Receipt Date: 20060801
  Transmission Date: 20061208
  Serious: Yes (Life-Threatening)
  Sender: FDA-Public Use
  Company Number: JP-2006-019493

PATIENT
  Age: 70 Year
  Sex: Female

DRUGS (8)
  1. PROSCOPE 300 (IOPROMIDE)INFUSION [Suspect]
     Indication: COMPUTERISED TOMOGRAM
     Dosage: 100 ML, 1 DOSE, IV BOLUS
     Route: 040
     Dates: start: 20060627, end: 20060627
  2. KINEDAK (EPALRESTAT) [Concomitant]
  3. GOSHA-JINKI-GAN [Concomitant]
  4. TANATRIL [Concomitant]
  5. CONIEL (BENIDIPINE HYDROCHLORIDE) [Concomitant]
  6. LANSOPRAZOLE [Concomitant]
  7. NOVORAPID (INSULIN ASPART) [Concomitant]
  8. LASIX [Concomitant]

REACTIONS (4)
  - ANAPHYLACTIC SHOCK [None]
  - DYSPHORIA [None]
  - MALAISE [None]
  - RESPIRATORY ARREST [None]
